FAERS Safety Report 25633826 (Version 4)
Quarter: 2025Q3

REPORT INFORMATION
  Report Type: Spontaneous
  Country: US (occurrence: US)
  Receive Date: 20250801
  Receipt Date: 20250827
  Transmission Date: 20251020
  Serious: Yes (Hospitalization)
  Sender: SANOFI AVENTIS
  Company Number: US-SA-2025SA221594

PATIENT
  Age: 67 Year
  Sex: Female
  Weight: 77.098 kg

DRUGS (1)
  1. DUPIXENT [Suspect]
     Active Substance: DUPILUMAB
     Indication: Dermatitis atopic
     Dosage: 300 MG, QOW
     Route: 058
     Dates: end: 2025

REACTIONS (8)
  - Cystitis [Unknown]
  - Blood pressure abnormal [Unknown]
  - Anxiety [Unknown]
  - Fungal infection [Unknown]
  - Cough [Unknown]
  - Nasal congestion [Unknown]
  - Functional gastrointestinal disorder [Unknown]
  - Urinary tract infection [Unknown]

NARRATIVE: CASE EVENT DATE: 20250724
